FAERS Safety Report 7605824-5 (Version None)
Quarter: 2011Q3

REPORT INFORMATION
  Report Type: 
  Country: None (occurrence: None)
  Receive Date: 20110713
  Receipt Date: 20110705
  Transmission Date: 20111222
  Serious: Yes (Other)
  Sender: FDA-Public Use
  Company Number: US-BAYER-201036226NA

PATIENT
  Age: 26 Year
  Sex: Female
  Weight: 99.773 kg

DRUGS (4)
  1. YASMIN [Suspect]
     Dosage: UNK
     Dates: start: 20080801, end: 20081201
  2. DROSPIRENONE AND ETHINYL ESTRADIOL [Suspect]
     Indication: CONTRACEPTION
     Dosage: UNK
     Dates: start: 20080501, end: 20081201
  3. MIRENA [Concomitant]
     Dosage: UNK
     Dates: start: 20081015
  4. YASMIN [Suspect]
     Indication: CONTRACEPTION
     Dosage: UNK
     Dates: start: 20070401, end: 20080501

REACTIONS (19)
  - CHOLECYSTITIS CHRONIC [None]
  - ABDOMINAL DISTENSION [None]
  - PANCREATITIS [None]
  - CONSTIPATION [None]
  - DIARRHOEA [None]
  - GALLBLADDER CHOLESTEROLOSIS [None]
  - POSTPARTUM DEPRESSION [None]
  - SPLENIC CYST [None]
  - SCAR [None]
  - HEPATOMEGALY [None]
  - CHOLECYSTECTOMY [None]
  - CHOLELITHIASIS [None]
  - ANXIETY [None]
  - DYSPEPSIA [None]
  - FLATULENCE [None]
  - HEPATIC ENZYME INCREASED [None]
  - DRUG DOSE OMISSION [None]
  - OBESITY [None]
  - DEPRESSION [None]
